FAERS Safety Report 4408656-4 (Version None)
Quarter: 2004Q3

REPORT INFORMATION
  Report Type: 
  Country: None (occurrence: None)
  Receive Date: 20040723
  Receipt Date: 20040713
  Transmission Date: 20050211
  Serious: Yes (Hospitalization)
  Sender: FDA-Public Use
  Company Number: K200401049

PATIENT
  Age: 78 Year
  Sex: Male

DRUGS (13)
  1. ALTACE [Suspect]
     Dosage: 2 U, QD, ORAL
     Route: 048
     Dates: end: 20040310
  2. PYOSTACINE(PRISTINAMYCIN) TABLET, 2G [Suspect]
     Dosage: 2G, QD, ORAL
     Route: 048
     Dates: end: 20040310
  3. AUGMENTIN(CLAVULANATE POTASSIUM, AMOXICILLIN TRIHYDRATE) TABLET, 3G [Suspect]
     Indication: GANGRENE
     Dosage: 3 G, QD, ORAL
     Route: 048
     Dates: end: 20040228
  4. TAHOR (ATORVASTATIN CALCIUM) 1U [Suspect]
     Dosage: 1 U, QD, ORAL
     Route: 048
     Dates: end: 20040310
  5. DOLIPRANE (PARACETAMOL) [Concomitant]
  6. LASIX [Concomitant]
  7. PREDNISONE TAB [Concomitant]
  8. ASPIRIN [Concomitant]
  9. SOPROL (BISOPROLOL FUMARATE) [Concomitant]
  10. VADILEX (IFENPRODIL TARTRATE) [Concomitant]
  11. ADANCOR (NICORANDIL) [Concomitant]
  12. LEXOMIL (BROMAZEPAM) [Concomitant]
  13. ESOMEPRAZOLE (ESOMEPRAZOLE) [Concomitant]

REACTIONS (2)
  - CHOLESTASIS [None]
  - CYTOLYTIC HEPATITIS [None]
